FAERS Safety Report 8645610 (Version 2)
Quarter: 2014Q1

REPORT INFORMATION
  Report Type: Spontaneous
  Country: US (occurrence: None)
  Receive Date: 20120323
  Receipt Date: 20130305
  Transmission Date: 20141002
  Serious: Yes (Hospitalization)
  Sender: FDA-Public Use
  Company Number: 163-21880-11101980

PATIENT
  Age: 65 Year
  Sex: Male
  Weight: 86.18 kg

DRUGS (8)
  1. REVLIMID [Suspect]
     Indication: PLASMA CELL MYELOMA
     Dosage: 5 MG, 1 IN 2 D, PO, 5 MG, 1 IN 2 D, PO
     Route: 048
     Dates: start: 201010, end: 201105
  2. METRONIDAZOLE [Concomitant]
  3. RENVELA [Concomitant]
  4. CARVEDILOL (CARVEDILOL) [Concomitant]
  5. VITAMIN D (ERGOCALCIFEROL) [Concomitant]
  6. GABAPENTIN (GABAPENTIN) [Concomitant]
  7. NEPHROCAPS (NEPHROCAPS) [Concomitant]
  8. VANCOMYCIN [Concomitant]

REACTIONS (3)
  - Device related infection [None]
  - Clostridium difficile colitis [None]
  - Bacterial infection [None]
